FAERS Safety Report 15459664 (Version 1)
Quarter: 2018Q4

REPORT INFORMATION
  Report Type: Spontaneous
  Country: FR (occurrence: FR)
  Receive Date: 20181003
  Receipt Date: 20181003
  Transmission Date: 20190204
  Serious: Yes (Other)
  Sender: FDA-Public Use
  Company Number: FR-TEVA-2018-FR-960531

PATIENT
  Sex: Female

DRUGS (1)
  1. RISEDRONATE TEVA 75 MG [Suspect]
     Active Substance: RISEDRONATE SODIUM
     Dosage: 1 DOSAGE FORM DAILY, 2 CONSECUTIVE DAYS PER MONTHS SINCE 2015
     Route: 048

REACTIONS (2)
  - Osteomyelitis [Unknown]
  - Therapy cessation [Unknown]
